FAERS Safety Report 13220122 (Version 1)
Quarter: 2017Q1

REPORT INFORMATION
  Report Type: Report from Study
  Country: JP (occurrence: JP)
  Receive Date: 20170210
  Receipt Date: 20170210
  Transmission Date: 20170428
  Serious: Yes (Death, Hospitalization, Other)
  Sender: FDA-Public Use
  Company Number: PHJP2016JP022513

PATIENT
  Age: 70 Year
  Sex: Male

DRUGS (15)
  1. FUROSEMIDE. [Concomitant]
     Active Substance: FUROSEMIDE
     Indication: PLASMA CELL MYELOMA
     Dosage: 10 MG, UNK
     Route: 048
  2. FARYDAK [Suspect]
     Active Substance: PANOBINOSTAT
     Dosage: 20 MG, QD
     Route: 048
     Dates: start: 20160531, end: 20160612
  3. SAMSCA [Concomitant]
     Active Substance: TOLVAPTAN
     Indication: PLASMA CELL MYELOMA
     Dosage: 7.5 MG, UNK
     Route: 048
  4. FARYDAK [Suspect]
     Active Substance: PANOBINOSTAT
     Dosage: 10 MG, QD (6 ADMINISTRATIONS PER CYCLE)
     Route: 048
     Dates: start: 20160510, end: 20160522
  5. MAGNESIUM [Concomitant]
     Active Substance: MAGNESIUM
     Indication: PLASMA CELL MYELOMA
     Dosage: 2 G, UNK
     Route: 048
  6. VICCLOX [Concomitant]
     Active Substance: ACYCLOVIR SODIUM
     Indication: PLASMA CELL MYELOMA
     Dosage: 200 MG, UNK
     Route: 048
  7. PREDONINE [Concomitant]
     Active Substance: PREDNISOLONE
     Indication: PLASMA CELL MYELOMA
     Dosage: 10 MG, UNK
     Route: 048
  8. CLOPIDOGREL [Concomitant]
     Active Substance: CLOPIDOGREL BISULFATE
     Indication: PLASMA CELL MYELOMA
     Dosage: 50 MG, UNK
     Route: 048
  9. ALOSENN [Concomitant]
     Active Substance: SENNA LEAF
     Indication: PLASMA CELL MYELOMA
     Dosage: 2 G, UNK
     Route: 048
  10. BORTEZOMIB [Suspect]
     Active Substance: BORTEZOMIB
     Indication: PLASMA CELL MYELOMA
     Dosage: 1.3 MG/M2, BIW
     Route: 058
     Dates: start: 20160510, end: 20160522
  11. HACHIMIGAN [Concomitant]
     Active Substance: HERBALS
     Indication: PLASMA CELL MYELOMA
     Dosage: 7.5 G, UNK
     Route: 048
  12. BORTEZOMIB [Suspect]
     Active Substance: BORTEZOMIB
     Dosage: 1.3 MG/M2, BIW
     Route: 058
     Dates: start: 20160531, end: 20160612
  13. OXYCODONE [Concomitant]
     Active Substance: OXYCODONE
     Indication: PLASMA CELL MYELOMA
     Dosage: 20 MG, UNK
     Route: 048
  14. FARYDAK [Suspect]
     Active Substance: PANOBINOSTAT
     Indication: PLASMA CELL MYELOMA
     Dosage: 20 MG, QD (3 ADMINISTRATIONS PER CYCLE)
     Route: 048
     Dates: start: 20160510, end: 20160522
  15. METHYCOBAL [Concomitant]
     Active Substance: METHYLCOBALAMIN
     Indication: PLASMA CELL MYELOMA
     Dosage: 1500 UG, UNK
     Route: 048

REACTIONS (8)
  - Renal disorder [Recovered/Resolved]
  - Drug effect incomplete [Unknown]
  - Plasma cell myeloma [Fatal]
  - Renal disorder [Recovered/Resolved]
  - Malaise [Unknown]
  - Asthenia [Unknown]
  - Malignant neoplasm progression [Fatal]
  - Platelet count decreased [Recovered/Resolved]

NARRATIVE: CASE EVENT DATE: 201605
